FAERS Safety Report 25431937 (Version 1)
Quarter: 2025Q2

REPORT INFORMATION
  Report Type: Spontaneous
  Country: US (occurrence: US)
  Receive Date: 20250613
  Receipt Date: 20250613
  Transmission Date: 20250717
  Serious: Yes (unspecified)
  Sender: LEITERS COMPOUNDING PHARMACY
  Company Number: US-Leiters-2178637

PATIENT
  Age: 83 Year
  Sex: Female

DRUGS (1)
  1. BEVACIZUMAB [Suspect]
     Active Substance: BEVACIZUMAB
     Indication: Neovascular age-related macular degeneration
     Dates: start: 20250314, end: 20250314

REACTIONS (1)
  - Inflammation [Recovering/Resolving]

NARRATIVE: CASE EVENT DATE: 20250416
